FAERS Safety Report 17289823 (Version 2)
Quarter: 2022Q1

REPORT INFORMATION
  Report Type: Spontaneous
  Country: CA (occurrence: CA)
  Receive Date: 20200120
  Receipt Date: 20220217
  Transmission Date: 20220423
  Serious: Yes (Hospitalization, Other)
  Sender: FDA-Public Use
  Company Number: CA-NAPPMUNDI-CAN-2020-0010518

PATIENT
  Age: 57 Year
  Sex: Female

DRUGS (10)
  1. MORPHINE SULFATE [Suspect]
     Active Substance: MORPHINE SULFATE
     Indication: Abdominal pain
     Dosage: UNK
     Route: 065
  2. XOLAIR [Suspect]
     Active Substance: OMALIZUMAB
     Indication: Chronic spontaneous urticaria
     Dosage: 300 MG, UNK
     Route: 058
  3. XOLAIR [Suspect]
     Active Substance: OMALIZUMAB
     Dosage: 300 MG, UNK
     Route: 058
  4. XOLAIR [Suspect]
     Active Substance: OMALIZUMAB
     Dosage: 300 MG, UNK
     Route: 058
  5. XOLAIR [Suspect]
     Active Substance: OMALIZUMAB
     Dosage: 300 MG, UNK
     Route: 058
  6. XOLAIR [Suspect]
     Active Substance: OMALIZUMAB
     Dosage: 300 MG, UNK
     Route: 058
  7. XOLAIR [Suspect]
     Active Substance: OMALIZUMAB
     Dosage: UNK
     Route: 058
  8. XOLAIR [Suspect]
     Active Substance: OMALIZUMAB
     Dosage: UNK
     Route: 058
  9. REACTINE                           /00884302/ [Concomitant]
     Indication: Chronic spontaneous urticaria
     Dosage: 1 DF, DAILY
     Route: 048
  10. REACTINE                           /00884302/ [Concomitant]
     Dosage: UNK
     Route: 065

REACTIONS (17)
  - Type 1 diabetes mellitus [Unknown]
  - Biliary obstruction [Unknown]
  - Gastroenteritis viral [Unknown]
  - Abdominal distension [Unknown]
  - Abdominal pain [Unknown]
  - Chronic spontaneous urticaria [Unknown]
  - Cough [Unknown]
  - Heart rate increased [Unknown]
  - Hyperhidrosis [Unknown]
  - Inflammation [Unknown]
  - Pruritus [Unknown]
  - Rash [Unknown]
  - Rhinorrhoea [Unknown]
  - Urticaria [Unknown]
  - Vitamin B12 deficiency [Unknown]
  - Vomiting [Unknown]
  - Weight decreased [Unknown]
